FAERS Safety Report 6478674-3 (Version None)
Quarter: 2009Q4

REPORT INFORMATION
  Report Type: 
  Country: None (occurrence: None)
  Receive Date: 20091207
  Receipt Date: 20091125
  Transmission Date: 20100525
  Serious: Yes (Other)
  Sender: FDA-Public Use
  Company Number: SE-PFIZER INC-2009296471

PATIENT
  Sex: Male

DRUGS (7)
  1. LYRICA [Suspect]
     Indication: ANXIETY
     Dosage: 900 TO 1200 MG DAILY
     Dates: end: 20091108
  2. LYRICA [Suspect]
     Dosage: 75 MG X 2
     Dates: start: 20090909
  3. LYRICA [Suspect]
     Dosage: 75 MG X 3
     Dates: start: 20091014
  4. LYRICA [Suspect]
     Dosage: 300 MG X 1
     Dates: start: 20091022
  5. LYRICA [Suspect]
     Dosage: 300 MG X 2
     Dates: start: 20091029
  6. SELOKEN [Concomitant]
     Indication: CARDIOMYOPATHY
     Dosage: 50 MG, 1X/DAY
     Dates: start: 20090601
  7. SELOKEN [Concomitant]
     Indication: ARRHYTHMIA

REACTIONS (4)
  - DRUG TOLERANCE [None]
  - DRUG WITHDRAWAL SYNDROME [None]
  - INTENTIONAL OVERDOSE [None]
  - TREATMENT NONCOMPLIANCE [None]
